FAERS Safety Report 12951158 (Version 3)
Quarter: 2017Q1

REPORT INFORMATION
  Report Type: Spontaneous
  Country: CN (occurrence: CN)
  Receive Date: 20161117
  Receipt Date: 20170215
  Transmission Date: 20170428
  Serious: Yes (Hospitalization, Other)
  Sender: FDA-Public Use
  Company Number: CN-BAYER-2016-215305

PATIENT
  Weight: 48 kg

DRUGS (3)
  1. KOGENATE FS [Suspect]
     Active Substance: ANTIHEMOPHILIC FACTOR, HUMAN RECOMBINANT
     Dosage: UNK
  2. KOGENATE FS [Suspect]
     Active Substance: ANTIHEMOPHILIC FACTOR, HUMAN RECOMBINANT
     Dosage: 250 IU, UNK
  3. KOGENATE FS [Suspect]
     Active Substance: ANTIHEMOPHILIC FACTOR, HUMAN RECOMBINANT
     Dosage: 250 IU, UNK

REACTIONS (7)
  - Appendicitis [Recovered/Resolved]
  - Haemarthrosis [None]
  - Drug ineffective [None]
  - Haemarthrosis [None]
  - Joint swelling [None]
  - Product quality issue [None]
  - Out of specification test results [None]

NARRATIVE: CASE EVENT DATE: 2014
